FAERS Safety Report 4913149-1 (Version None)
Quarter: 2006Q1

REPORT INFORMATION
  Report Type: 
  Country: None (occurrence: None)
  Receive Date: 20060210
  Receipt Date: 20060131
  Transmission Date: 20060701
  Serious: Yes (Life-Threatening)
  Sender: FDA-Public Use
  Company Number: GXKR2006DE00752

PATIENT
  Age: 77 Year
  Sex: Male
  Weight: 50 kg

DRUGS (5)
  1. MELPERONE-G-MPHD+LIQ(MELPERONE)LIQUID [Suspect]
     Dosage: 3 ML, TID, ORAL
     Route: 048
  2. HALOPERIDOL [Suspect]
     Dosage: 3 ML, TID, ORAL
     Route: 048
  3. TORSEMIDE [Suspect]
  4. ZYPREXA [Concomitant]
  5. ZOLPIDEM [Concomitant]

REACTIONS (5)
  - BLOOD CREATINE PHOSPHOKINASE INCREASED [None]
  - HYPOCALCAEMIA [None]
  - HYPOKALAEMIA [None]
  - MUSCULOSKELETAL STIFFNESS [None]
  - NEUROLEPTIC MALIGNANT SYNDROME [None]
